FAERS Safety Report 13863760 (Version 1)
Quarter: 2017Q3

REPORT INFORMATION
  Report Type: Report from Study
  Country: SI (occurrence: SI)
  Receive Date: 20170814
  Receipt Date: 20170814
  Transmission Date: 20171127
  Serious: Yes (Death, Other)
  Sender: FDA-Public Use
  Company Number: PHHY2017SI058965

PATIENT
  Age: 64 Year
  Sex: Male

DRUGS (3)
  1. SANDOSTATIN LAR DEPOT [Suspect]
     Active Substance: OCTREOTIDE ACETATE
     Indication: GASTROENTEROPANCREATIC NEUROENDOCRINE TUMOUR DISEASE
     Dosage: 30 MG, QMO
     Route: 030
     Dates: start: 20170123
  2. AFINITOR [Suspect]
     Active Substance: EVEROLIMUS
     Indication: PRODUCT USED FOR UNKNOWN INDICATION
     Route: 065
  3. SANDOSTATIN LAR DEPOT [Suspect]
     Active Substance: OCTREOTIDE ACETATE
     Indication: METASTASES TO LUNG

REACTIONS (8)
  - Death [Fatal]
  - Metastases to lung [Not Recovered/Not Resolved]
  - Headache [Unknown]
  - Gingival bleeding [Unknown]
  - Epistaxis [Unknown]
  - Chills [Unknown]
  - Malignant neoplasm progression [Not Recovered/Not Resolved]
  - Gastroenteropancreatic neuroendocrine tumour disease [Not Recovered/Not Resolved]

NARRATIVE: CASE EVENT DATE: 201701
